FAERS Safety Report 9704836 (Version 1)
Quarter: 2013Q4

REPORT INFORMATION
  Report Type: Spontaneous
  Country: ES (occurrence: ES)
  Receive Date: 20131122
  Receipt Date: 20131122
  Transmission Date: 20140711
  Serious: Yes (Hospitalization)
  Sender: FDA-Public Use
  Company Number: US-ASTRAZENECA-2013SE85770

PATIENT
  Age: 93 Year
  Sex: Female

DRUGS (12)
  1. PARAPRES PLUS [Suspect]
     Indication: HYPERTENSION
     Dosage: 16 MG/12.5 MG 1 DF, EVERY DAY
     Route: 048
     Dates: start: 20130301, end: 20130304
  2. PARACETAMOL [Suspect]
     Indication: PAIN
     Route: 048
     Dates: start: 20130301, end: 20130304
  3. AUGMENTINE [Suspect]
     Indication: URINARY TRACT INFECTION
     Dosage: 875 MG/125 MG
     Route: 048
     Dates: start: 20130303, end: 20130304
  4. FOSFOMYCIN [Suspect]
     Indication: URINARY TRACT INFECTION
     Route: 048
     Dates: start: 20130301, end: 20130302
  5. ZOLPIDEM [Concomitant]
     Indication: INSOMNIA
     Route: 048
     Dates: start: 201302
  6. CROMATONBIC B12 1000 INYECTABLE, 8 AMPOLLAS DE 1 ML [Concomitant]
     Dosage: AMPOULES OF 1 ML, 1 BOTTLE TO DRINK
     Route: 048
     Dates: start: 201302
  7. VENLAFAXINA [Concomitant]
     Indication: DEPRESSION
     Route: 048
     Dates: start: 201302
  8. SIMVASTATINA [Concomitant]
     Indication: DYSLIPIDAEMIA
     Dates: start: 201302
  9. ADIRO 100 MG COMPRIMIDOS GASTRORRESISTENTES EFG 30 COMPRIMIDOS [Concomitant]
     Indication: CARDIOVASCULAR EVENT PROPHYLAXIS
     Route: 048
     Dates: start: 201302
  10. ENALAPRIL [Concomitant]
     Indication: PROPHYLAXIS AGAINST GASTROINTESTINAL ULCER
     Route: 048
     Dates: start: 201302, end: 20130304
  11. NASONEX 50 MICROGRAMOS SUSPENSION PARA PULVERIZACION NASAL, 1 ENVASE [Concomitant]
     Indication: RHINITIS
     Dosage: 50 MICROG, 1 INHALATION DAILY
     Route: 045
     Dates: start: 201301
  12. OMEPRAZOL [Concomitant]
     Indication: PROPHYLAXIS AGAINST GASTROINTESTINAL ULCER
     Dosage: 20

REACTIONS (1)
  - Renal tubular necrosis [Recovered/Resolved]
